FAERS Safety Report 20588981 (Version 1)
Quarter: 2022Q1

REPORT INFORMATION
  Report Type: Spontaneous
  Country: AR (occurrence: AR)
  Receive Date: 20220314
  Receipt Date: 20220314
  Transmission Date: 20220423
  Serious: Yes (Life-Threatening, Hospitalization, Other)
  Sender: FDA-Public Use
  Company Number: AR-EPICPHARMA-AR-2022EPCLIT00159

PATIENT
  Age: 14 Year
  Sex: Male

DRUGS (1)
  1. AMLODIPINE [Suspect]
     Active Substance: AMLODIPINE BESYLATE
     Indication: Product used for unknown indication
     Dosage: 30 TABLETS OF 10 MG
     Route: 048

REACTIONS (5)
  - Haemodynamic instability [Recovered/Resolved]
  - Acute pulmonary oedema [Recovered/Resolved]
  - Overdose [Recovered/Resolved]
  - Toxicity to various agents [Recovered/Resolved]
  - Blood lactic acid increased [Recovered/Resolved]
